FAERS Safety Report 6285777-5 (Version None)
Quarter: 2009Q3

REPORT INFORMATION
  Report Type: 
  Country: None (occurrence: None)
  Receive Date: 20090724
  Receipt Date: 20090710
  Transmission Date: 20100115
  Serious: Yes (Hospitalization)
  Sender: FDA-Public Use
  Company Number: 2009S1005465

PATIENT
  Age: 63 Year
  Sex: Female

DRUGS (9)
  1. PHOSPHOSODA FLAVOR NOT SPECIFIED [Suspect]
     Indication: COLONOSCOPY
     Dosage: 90 ML; TOTAL; PO
     Route: 048
     Dates: start: 20081124, end: 20081125
  2. HYDROCHLOROTHIAZIDE [Concomitant]
  3. DOXAZOSIN MESYLATE [Concomitant]
  4. LORATADINE [Concomitant]
  5. LEVOTHYROXINE SODIUM [Concomitant]
  6. METFORMIN [Concomitant]
  7. GLYBURIDE [Concomitant]
  8. NAPROXEN [Concomitant]
  9. REGLAN [Concomitant]

REACTIONS (4)
  - INFLUENZA LIKE ILLNESS [None]
  - PERITONEAL DIALYSIS [None]
  - RENAL FAILURE ACUTE [None]
  - URATE NEPHROPATHY [None]
